FAERS Safety Report 5199078-X (Version None)
Quarter: 2007Q1

REPORT INFORMATION
  Report Type: 
  Country: None (occurrence: None)
  Receive Date: 20070104
  Receipt Date: 20061229
  Transmission Date: 20070707
  Serious: Yes (Other)
  Sender: FDA-Public Use
  Company Number: CA-PFIZER INC-2007000471

PATIENT
  Age: 50 Year
  Sex: Female

DRUGS (26)
  1. LYRICA [Suspect]
     Indication: ARTHRALGIA
     Dosage: DAILY DOSE:225MG-FREQ:50 MG MORNING, NOON AND 125MG EVENING
     Route: 048
  2. LYRICA [Suspect]
     Indication: PAIN
  3. METHOTREXATE [Concomitant]
  4. CELEBREX [Concomitant]
  5. FIORINAL [Concomitant]
  6. FOLIC ACID [Concomitant]
  7. CORTEF [Concomitant]
     Indication: ADDISON'S DISEASE
  8. LIPITOR [Concomitant]
  9. VENTOLIN [Concomitant]
  10. RHINOCORT AQUA [Concomitant]
  11. ACTONEL [Concomitant]
  12. TIAZAC [Concomitant]
  13. HUMALOG [Concomitant]
  14. PREDNISONE TAB [Concomitant]
  15. SYMBICORT [Concomitant]
  16. MAXALT [Concomitant]
     Indication: MIGRAINE
     Dosage: FREQ:AS NEEDED
  17. LEUCOVORIN CALCIUM [Concomitant]
  18. NYSTATIN [Concomitant]
  19. LANOXIN [Concomitant]
  20. RIVOTRIL [Concomitant]
  21. TRIAZOLAM [Concomitant]
  22. ATIVAN [Concomitant]
  23. CALCIUM [Concomitant]
  24. VITAMIN D3 [Concomitant]
  25. LASIX [Concomitant]
  26. K-DUR 10 [Concomitant]

REACTIONS (1)
  - TRANSIENT ISCHAEMIC ATTACK [None]
